FAERS Safety Report 4320564-6 (Version None)
Quarter: 2004Q1

REPORT INFORMATION
  Report Type: 
  Country: None (occurrence: None)
  Receive Date: 20040319
  Receipt Date: 20040319
  Transmission Date: 20041129
  Serious: Yes (Other)
  Sender: FDA-Public Use
  Company Number: None

PATIENT
  Sex: Male
  Weight: 60.3284 kg

DRUGS (1)
  1. PRIMAXIN [Suspect]
     Indication: OSTEOMYELITIS
     Dosage: IV 250 MG Q 12
     Route: 042
     Dates: start: 20040312, end: 20040317

REACTIONS (2)
  - PRURITUS [None]
  - RASH [None]
